FAERS Safety Report 23736160 (Version 1)
Quarter: 2024Q2

REPORT INFORMATION
  Report Type: Spontaneous
  Country: US (occurrence: None)
  Receive Date: 20240411
  Receipt Date: 20240411
  Transmission Date: 20240716
  Serious: Yes (Other)
  Sender: FDA-Public Use
  Company Number: None

PATIENT
  Age: 13 Year
  Sex: Male
  Weight: 49.5 kg

DRUGS (2)
  1. ICY HOT [Suspect]
     Active Substance: MENTHOL\METHYL SALICYLATE
     Indication: Muscle strain
     Dosage: OTHER QUANTITY : 1 ROLL ON;?FREQUENCY : DAILY;?
     Route: 061
     Dates: start: 20240411, end: 20240411
  2. Insulin (Lantus and Humulog) [Concomitant]

REACTIONS (4)
  - Erythema [None]
  - Skin warm [None]
  - Swelling [None]
  - Pain [None]

NARRATIVE: CASE EVENT DATE: 20240411
